FAERS Safety Report 16099922 (Version 1)
Quarter: 2019Q1

REPORT INFORMATION
  Report Type: Report from Study
  Country: DE (occurrence: DE)
  Receive Date: 20190321
  Receipt Date: 20190321
  Transmission Date: 20190418
  Serious: Yes (Death, Other)
  Sender: FDA-Public Use
  Company Number: DE-TAKEDA-2019TUS002457

PATIENT
  Age: 64 Year
  Sex: Male
  Weight: 58 kg

DRUGS (10)
  1. BORTEZOMIB. [Suspect]
     Active Substance: BORTEZOMIB
     Dosage: 2.3 MILLIGRAM
     Route: 065
     Dates: start: 20181218, end: 20181219
  2. PREDNISOLONE. [Suspect]
     Active Substance: PREDNISOLONE
     Dosage: 10 MILLIGRAM
     Route: 065
     Dates: start: 20181221
  3. ACICLOVIR RATIOPHARM [Concomitant]
     Dosage: 400 MILLIGRAM, QD
     Route: 048
     Dates: start: 20180827, end: 20181219
  4. BENDAMUSTINE [Suspect]
     Active Substance: BENDAMUSTINE
     Indication: PLASMA CELL MYELOMA
     Dosage: 160 MILLIGRAM
     Route: 065
     Dates: start: 20181009
  5. PREDNISOLONE. [Suspect]
     Active Substance: PREDNISOLONE
     Indication: PLASMA CELL MYELOMA
     Dosage: 10 MILLIGRAM
     Route: 065
     Dates: start: 20181009, end: 20181219
  6. BENDAMUSTINE [Suspect]
     Active Substance: BENDAMUSTINE
     Dosage: 160 MILLIGRAM
     Route: 065
     Dates: start: 20181219, end: 20181219
  7. L-THYROXIN HENNING [Concomitant]
     Active Substance: LEVOTHYROXINE SODIUM
     Dosage: 50 MILLIGRAM, QD
     Route: 048
     Dates: start: 20181025
  8. GRANISETRON KABI [Concomitant]
     Active Substance: GRANISETRON
     Route: 042
     Dates: start: 20180827, end: 20181218
  9. CALCIUM ASCORBATE [Concomitant]
     Active Substance: CALCIUM ASCORBATE
     Dosage: 1000 MILLIGRAM, QD
     Route: 048
     Dates: start: 20181030
  10. BORTEZOMIB. [Suspect]
     Active Substance: BORTEZOMIB
     Indication: PLASMA CELL MYELOMA
     Dosage: 2.3 MILLIGRAM
     Route: 065
     Dates: start: 20181009

REACTIONS (1)
  - Plasma cell myeloma [Fatal]
